FAERS Safety Report 5143266-5 (Version None)
Quarter: 2006Q4

REPORT INFORMATION
  Report Type: 
  Country: None (occurrence: None)
  Receive Date: 20061030
  Receipt Date: 20061016
  Transmission Date: 20070319
  Serious: Yes (Other)
  Sender: FDA-Public Use
  Company Number: 2006129827

PATIENT
  Sex: Female

DRUGS (2)
  1. BEXTRA [Suspect]
     Indication: BACK PAIN
     Dosage: 20 MG (20 MG,1 IN 1 D)
     Dates: start: 20040520
  2. BEXTRA [Suspect]
     Indication: NECK PAIN
     Dosage: 20 MG (20 MG,1 IN 1 D)
     Dates: start: 20040520

REACTIONS (1)
  - CEREBROVASCULAR ACCIDENT [None]
